FAERS Safety Report 5061922-4 (Version None)
Quarter: 2006Q3

REPORT INFORMATION
  Report Type: 
  Country: None (occurrence: None)
  Receive Date: 20060721
  Receipt Date: 20060710
  Transmission Date: 20061208
  Serious: Yes (Other)
  Sender: FDA-Public Use
  Company Number: CHNY2006DE02000

PATIENT
  Sex: Male

DRUGS (1)
  1. PENCICLOVIR [Suspect]
     Indication: ACNE
     Dosage: APPLIED 3 TIMES BY MISTAKE ON ACNE AREA, TOPICAL
     Route: 061
     Dates: start: 20060629, end: 20060629

REACTIONS (5)
  - APPLICATION SITE ANAESTHESIA [None]
  - APPLICATION SITE PARAESTHESIA [None]
  - APPLICATION SITE REACTION [None]
  - HYPOAESTHESIA FACIAL [None]
  - WRONG DRUG ADMINISTERED [None]
